FAERS Safety Report 7047172-0 (Version None)
Quarter: 2010Q4

REPORT INFORMATION
  Report Type: 
  Country: None (occurrence: None)
  Receive Date: 20101007
  Receipt Date: 20100922
  Transmission Date: 20110411
  Serious: Yes (Hospitalization)
  Sender: FDA-Public Use
  Company Number: TCI2010A03683

PATIENT
  Age: 55 Year
  Sex: Male

DRUGS (7)
  1. ACTOS [Suspect]
     Indication: DIABETES MELLITUS
     Dosage: 15 MG (15 MG, 1 IN 1 D) PER ORAL
     Route: 048
     Dates: start: 20091030
  2. LIPIDIL [Suspect]
     Indication: DYSLIPIDAEMIA
     Dosage: 200 MG (100 MG, 2 IN 1 D) PER ORAL
     Route: 048
     Dates: start: 20080620
  3. DIOVAN [Concomitant]
  4. ADENOCK (ALLOPURINOL) [Concomitant]
  5. ABEMIDE (CHLORPROPAMIDE) [Concomitant]
  6. METFORMIN HYDROCHLORIDE [Concomitant]
  7. CORINAEL CR (NIFEDIPINE) [Concomitant]

REACTIONS (2)
  - HIGH DENSITY LIPOPROTEIN DECREASED [None]
  - INSULIN RESISTANCE [None]
